FAERS Safety Report 8455439-4 (Version None)
Quarter: 2012Q2

REPORT INFORMATION
  Report Type: 
  Country: None (occurrence: None)
  Receive Date: 20120614
  Receipt Date: 20120612
  Transmission Date: 20120825
  Serious: Yes (Hospitalization)
  Sender: FDA-Public Use
  Company Number: ADR-2011-11005

PATIENT
  Age: 41 Year
  Sex: Female

DRUGS (4)
  1. BUPIVACAINE HCL [Concomitant]
  2. FENTANYL [Concomitant]
  3. CLONIDINE [Concomitant]
  4. LIORESAL [Suspect]
     Indication: MUSCLE SPASTICITY
     Dosage: 470.95 MCG, DAILY, INTR
     Route: 037

REACTIONS (5)
  - DRUG WITHDRAWAL SYNDROME [None]
  - TACHYCARDIA [None]
  - HYPERTENSION [None]
  - WITHDRAWAL SYNDROME [None]
  - DEVICE DISLOCATION [None]
